FAERS Safety Report 24165049 (Version 1)
Quarter: 2024Q3

REPORT INFORMATION
  Report Type: Spontaneous
  Country: US (occurrence: US)
  Receive Date: 20240802
  Receipt Date: 20240802
  Transmission Date: 20241016
  Serious: Yes (Hospitalization)
  Sender: ROCHE
  Company Number: US-ROCHE-10000038298

PATIENT
  Age: 64 Year
  Sex: Female

DRUGS (4)
  1. XOLAIR PFS [Suspect]
     Active Substance: OMALIZUMAB
     Indication: Urticaria
     Dosage: STRENGTH: 150 MG/ML, DRUG STILL BEING ADMINISTERED
     Route: 058
     Dates: start: 202306
  2. XOLAIR PFS [Suspect]
     Active Substance: OMALIZUMAB
  3. RINVOQ [Concomitant]
     Active Substance: UPADACITINIB
  4. TERIPARATIDE [Concomitant]
     Active Substance: TERIPARATIDE
     Indication: Senile osteoporosis

REACTIONS (1)
  - Clostridium difficile infection [Unknown]
